FAERS Safety Report 18024787 (Version 1)
Quarter: 2020Q3

REPORT INFORMATION
  Report Type: Spontaneous
  Country: US (occurrence: US)
  Receive Date: 20200715
  Receipt Date: 20200715
  Transmission Date: 20201103
  Serious: Yes (Other)
  Sender: FDA-Public Use
  Company Number: None

PATIENT
  Age: 51 Year
  Sex: Female
  Weight: 94.2 kg

DRUGS (10)
  1. CEFTRIAXONE 1G IV DAILY [Concomitant]
     Dates: start: 20200627, end: 20200701
  2. REMDESIVIR. [Suspect]
     Active Substance: REMDESIVIR
     Indication: COVID-19 PNEUMONIA
     Dosage: ?          OTHER FREQUENCY:200MG, 100MG/DX4;?
     Route: 042
     Dates: start: 20200629, end: 20200703
  3. ACETAMINOPHEN 325MG Q6H PRN PAIN 1?3. FEVER [Concomitant]
     Dates: start: 20200627
  4. LANTUS QHS [Concomitant]
     Dates: start: 20200627
  5. NOREPINEPHRINE IV INFUSION [Concomitant]
     Dates: start: 20200704, end: 20200707
  6. INSULIN LISPRO SLIDING SCALE 4X/D [Concomitant]
     Dates: start: 20200627
  7. TOCILIZUMAB 400MG IV X 1 [Concomitant]
     Dates: start: 20200712, end: 20200712
  8. ENOXAPARIN 30MG SUBQ Q12H [Concomitant]
     Dates: start: 20200627
  9. AZITHROMYCIN 500MG IV DAILY [Concomitant]
     Dates: start: 20200627, end: 20200701
  10. DEXAMETHASONE 6MG IV DAILY [Concomitant]
     Dates: start: 20200627, end: 20200704

REACTIONS (1)
  - International normalised ratio increased [None]

NARRATIVE: CASE EVENT DATE: 20200706
